FAERS Safety Report 12235768 (Version 2)
Quarter: 2016Q2

REPORT INFORMATION
  Report Type: Spontaneous
  Country: JP (occurrence: JP)
  Receive Date: 20160404
  Receipt Date: 20160426
  Transmission Date: 20160815
  Serious: Yes (Other)
  Sender: FDA-Public Use
  Company Number: JP-BAYER-2016-058704

PATIENT
  Age: 69 Year
  Sex: Male
  Weight: 57 kg

DRUGS (3)
  1. NEXAVAR [Suspect]
     Active Substance: SORAFENIB
     Indication: HEPATOCELLULAR CARCINOMA
     Dosage: 400 MG, QD
     Route: 048
     Dates: start: 20151005, end: 20160105
  2. NEXAVAR [Suspect]
     Active Substance: SORAFENIB
     Indication: HEPATOCELLULAR CARCINOMA
     Dosage: DAILY DOSE 600
     Route: 048
     Dates: start: 20160106
  3. MIRIPLATIN [Suspect]
     Active Substance: MIRIPLATIN
     Dosage: UNK

REACTIONS (1)
  - Hepatitis B [Not Recovered/Not Resolved]

NARRATIVE: CASE EVENT DATE: 20160129
